FAERS Safety Report 10380346 (Version 1)
Quarter: 2014Q3

REPORT INFORMATION
  Report Type: Spontaneous
  Country: US (occurrence: None)
  Receive Date: 20140812
  Receipt Date: 20140812
  Transmission Date: 20150326
  Serious: No
  Sender: FDA-Public Use
  Company Number: None

PATIENT
  Age: 52 Year
  Sex: Male
  Weight: 63.5 kg

DRUGS (1)
  1. AMOXICILLIN AND CLAVULANATE POTASSIUM [Suspect]
     Active Substance: AMOXICILLIN\CLAVULANATE POTASSIUM
     Indication: ILL-DEFINED DISORDER
     Dosage: 75 ML  THREE TIMES DAILY TAKEN BY MOUTH
     Route: 048
     Dates: start: 20140805, end: 20140808

REACTIONS (4)
  - Product quality issue [None]
  - Oral discomfort [None]
  - Throat irritation [None]
  - Product contamination [None]

NARRATIVE: CASE EVENT DATE: 20140808
